FAERS Safety Report 25807857 (Version 2)
Quarter: 2025Q3

REPORT INFORMATION
  Report Type: Spontaneous
  Country: BA (occurrence: BA)
  Receive Date: 20250916
  Receipt Date: 20250917
  Transmission Date: 20251021
  Serious: Yes (Other)
  Sender: PFIZER
  Company Number: BA-PFIZER INC-PV202500111155

PATIENT
  Age: 43 Year
  Sex: Male

DRUGS (1)
  1. LORLATINIB [Suspect]
     Active Substance: LORLATINIB
     Indication: Non-small cell lung cancer
     Dosage: 100 MG, 1X/DAY

REACTIONS (4)
  - Hallucination, visual [Recovered/Resolved]
  - Hyperlipidaemia [Recovered/Resolved]
  - Irritability [Recovered/Resolved]
  - Cognitive disorder [Recovered/Resolved]
